FAERS Safety Report 13168394 (Version 1)
Quarter: 2017Q1

REPORT INFORMATION
  Report Type: Spontaneous
  Country: US (occurrence: US)
  Receive Date: 20170131
  Receipt Date: 20170131
  Transmission Date: 20170428
  Serious: Yes (Hospitalization, Other)
  Sender: FDA-Public Use
  Company Number: US-PFIZER INC-2017035362

PATIENT
  Sex: Female

DRUGS (4)
  1. DEPO-ESTRADIOL [Suspect]
     Active Substance: ESTRADIOL CYPIONATE
     Dosage: UNK
  2. PRISTIQ EXTENDED-RELEASE [Suspect]
     Active Substance: DESVENLAFAXINE SUCCINATE
     Dosage: UNK
  3. XANAX [Suspect]
     Active Substance: ALPRAZOLAM
     Dosage: UNK
  4. LYRICA [Suspect]
     Active Substance: PREGABALIN
     Dosage: UNK

REACTIONS (18)
  - Lung infiltration [Unknown]
  - Pyrexia [Unknown]
  - Fibromyalgia [Unknown]
  - Fall [Unknown]
  - Insomnia [Unknown]
  - Grip strength decreased [Unknown]
  - Weight decreased [Unknown]
  - Tremor [Unknown]
  - Productive cough [Unknown]
  - Muscle spasms [Unknown]
  - Respiratory failure [Unknown]
  - Upper limb fracture [Unknown]
  - Osteoarthritis [Unknown]
  - Asthenia [Unknown]
  - Sputum abnormal [Recovering/Resolving]
  - Gait disturbance [Unknown]
  - Loose body in joint [Unknown]
  - Cough [Unknown]

NARRATIVE: CASE EVENT DATE: 20151014
